FAERS Safety Report 13515611 (Version 2)
Quarter: 2017Q2

REPORT INFORMATION
  Report Type: Report from Study
  Country: US (occurrence: US)
  Receive Date: 20170504
  Receipt Date: 20170519
  Transmission Date: 20170830
  Serious: Yes (Hospitalization, Other)
  Sender: FDA-Public Use
  Company Number: US-JAZZ-2017-US-003927

PATIENT
  Sex: Female

DRUGS (20)
  1. ALPRAZOLAM. [Concomitant]
     Active Substance: ALPRAZOLAM
  2. LATUDA [Concomitant]
     Active Substance: LURASIDONE HYDROCHLORIDE
  3. LORAZEPAM. [Concomitant]
     Active Substance: LORAZEPAM
  4. VITAMIN B COMPLEX [Concomitant]
     Active Substance: CYANOCOBALAMIN\DEXPANTHENOL\NIACINAMIDE\PYRIDOXINE HYDROCHLORIDE\RIBOFLAVIN 5^-PHOSPHATE SODIUM\THIAMINE HYDROCHLORIDE\VITAMIN B COMPLEX
  5. ABILIFY [Concomitant]
     Active Substance: ARIPIPRAZOLE
  6. PROZAC [Concomitant]
     Active Substance: FLUOXETINE HYDROCHLORIDE
  7. PROPRANOLOL [Concomitant]
     Active Substance: PROPRANOLOL HYDROCHLORIDE
  8. AZITHROMYCIN ANHYDROUS. [Concomitant]
     Active Substance: AZITHROMYCIN ANHYDROUS
  9. CLONAZEPAM. [Concomitant]
     Active Substance: CLONAZEPAM
  10. XANAX [Concomitant]
     Active Substance: ALPRAZOLAM
  11. FISH OIL CONCENTRATE [Concomitant]
     Active Substance: FISH OIL
  12. XYREM [Suspect]
     Active Substance: SODIUM OXYBATE
     Dosage: DOSE ADJUSTMENT
     Route: 048
     Dates: start: 2014, end: 2016
  13. BC                                 /00110301/ [Concomitant]
  14. IBUPROFEN. [Concomitant]
     Active Substance: IBUPROFEN
  15. XYREM [Suspect]
     Active Substance: SODIUM OXYBATE
     Indication: NARCOLEPSY
     Dosage: 2.5 G, BID
     Route: 048
     Dates: start: 201410, end: 2014
  16. BUSPIRONE HCL [Concomitant]
     Active Substance: BUSPIRONE HYDROCHLORIDE
  17. XYREM [Suspect]
     Active Substance: SODIUM OXYBATE
     Dosage: 3.5 G, BID
     Route: 048
     Dates: start: 201610
  18. EFFEXOR [Suspect]
     Active Substance: VENLAFAXINE HYDROCHLORIDE
     Indication: PRODUCT USED FOR UNKNOWN INDICATION
     Dosage: UNK
     Dates: start: 201603
  19. ADDERALL [Concomitant]
     Active Substance: AMPHETAMINE ASPARTATE\AMPHETAMINE SULFATE\DEXTROAMPHETAMINE SACCHARATE\DEXTROAMPHETAMINE SULFATE
  20. TRAZODONE [Concomitant]
     Active Substance: TRAZODONE HYDROCHLORIDE

REACTIONS (8)
  - Suicidal ideation [Recovered/Resolved]
  - Withdrawal syndrome [Not Recovered/Not Resolved]
  - Depression [Not Recovered/Not Resolved]
  - Therapeutic response decreased [Unknown]
  - Hospitalisation [Recovered/Resolved]
  - Food craving [Unknown]
  - Norepinephrine decreased [Not Recovered/Not Resolved]
  - Product taste abnormal [Unknown]

NARRATIVE: CASE EVENT DATE: 2016
